FAERS Safety Report 8811565 (Version 2)
Quarter: 2013Q1

REPORT INFORMATION
  Report Type: Spontaneous
  Country: US (occurrence: US)
  Receive Date: 20120927
  Receipt Date: 20130219
  Transmission Date: 20140127
  Serious: Yes (Death, Hospitalization)
  Sender: FDA-Public Use
  Company Number: US-JNJFOC-20120910616

PATIENT
  Age: 58 Year
  Sex: Female

DRUGS (2)
  1. XARELTO [Suspect]
     Indication: THROMBOSIS PROPHYLAXIS
     Route: 048
  2. XARELTO [Suspect]
     Indication: SURGERY
     Route: 048

REACTIONS (2)
  - Cerebrovascular accident [Fatal]
  - Thrombosis [Fatal]
